FAERS Safety Report 19922316 (Version 1)
Quarter: 2021Q4

REPORT INFORMATION
  Report Type: Spontaneous
  Country: CH (occurrence: CH)
  Receive Date: 20211006
  Receipt Date: 20211006
  Transmission Date: 20220304
  Serious: Yes (Life-Threatening, Hospitalization, Other)
  Sender: FDA-Public Use
  Company Number: CH-PFIZER INC-202101261118

PATIENT
  Sex: Female

DRUGS (1)
  1. CYTOTEC [Suspect]
     Active Substance: MISOPROSTOL
     Indication: Labour induction
     Dosage: 75 UG
     Route: 064
     Dates: start: 20180711

REACTIONS (2)
  - Bradycardia foetal [Recovered/Resolved]
  - Foetal exposure during delivery [Unknown]

NARRATIVE: CASE EVENT DATE: 20180711
